FAERS Safety Report 9209212 (Version 1)
Quarter: 2013Q2

REPORT INFORMATION
  Report Type: Spontaneous
  Country: DK (occurrence: DK)
  Receive Date: 20130404
  Receipt Date: 20130404
  Transmission Date: 20140414
  Serious: Yes (Other)
  Sender: FDA-Public Use
  Company Number: DK-MYLANLABS-2013S1006732

PATIENT
  Age: 69 Year
  Sex: Female

DRUGS (2)
  1. AZATHIOPRINE [Suspect]
     Indication: GLOMERULONEPHRITIS
     Route: 065
  2. PREDNISOLONE [Concomitant]
     Indication: GLOMERULONEPHRITIS
     Route: 065

REACTIONS (1)
  - Optic neuropathy [Unknown]
